FAERS Safety Report 5920084-9 (Version None)
Quarter: 2008Q4

REPORT INFORMATION
  Report Type: 
  Country: None (occurrence: None)
  Receive Date: 20081014
  Receipt Date: 20080928
  Transmission Date: 20090506
  Serious: Yes (Hospitalization, Other)
  Sender: FDA-Public Use
  Company Number: TNZIE200800111

PATIENT
  Age: 24 Year
  Sex: Female

DRUGS (2)
  1. INNOHEP [Suspect]
     Indication: PROPHYLAXIS
     Dosage: SEE IMAGE
     Route: 058
  2. ASPIRIN [Concomitant]

REACTIONS (7)
  - CAESAREAN SECTION [None]
  - DRUG EXPOSURE DURING PREGNANCY [None]
  - DRUG INEFFECTIVE [None]
  - ECLAMPSIA [None]
  - IDIOPATHIC THROMBOCYTOPENIC PURPURA [None]
  - PANCYTOPENIA [None]
  - PREMATURE SEPARATION OF PLACENTA [None]
